FAERS Safety Report 6879285-8 (Version None)
Quarter: 2010Q3

REPORT INFORMATION
  Report Type: 
  Country: None (occurrence: None)
  Receive Date: 20100728
  Receipt Date: 20100713
  Transmission Date: 20110219
  Serious: Yes (Hospitalization)
  Sender: FDA-Public Use
  Company Number: US-SANOFI-AVENTIS-A03200904443

PATIENT
  Age: 47 Year
  Sex: Male

DRUGS (17)
  1. DRONEDARONE HCL [Suspect]
     Indication: ATRIAL FIBRILLATION
     Dosage: UNIT DOSE: 400 MG
     Route: 048
     Dates: start: 20090901, end: 20090905
  2. ASPIRIN [Concomitant]
     Dosage: UNIT DOSE: 325 MG
     Route: 065
  3. SPIRONOLACTONE [Concomitant]
     Route: 065
  4. CELEXA [Concomitant]
     Route: 065
  5. RAMIPRIL [Concomitant]
     Route: 065
  6. COUMADIN [Concomitant]
     Route: 065
  7. MAGNESIUM OXIDE [Concomitant]
     Route: 065
  8. K-DUR [Concomitant]
     Route: 065
  9. TOPROL-XL [Concomitant]
     Route: 065
  10. VANCOMYCIN [Concomitant]
     Route: 065
  11. CEFEPIME [Concomitant]
     Route: 065
  12. ATIVAN [Concomitant]
     Route: 065
  13. FUROSEMIDE [Concomitant]
     Route: 065
  14. DOFETILIDE [Concomitant]
     Route: 065
  15. PANTOPRAZOLE [Concomitant]
     Route: 065
  16. MELATONIN [Concomitant]
     Route: 065
  17. MULTI-VITAMINS [Concomitant]

REACTIONS (13)
  - ALANINE AMINOTRANSFERASE INCREASED [None]
  - BLOOD BILIRUBIN INCREASED [None]
  - BLOOD CREATININE INCREASED [None]
  - BLOOD UREA INCREASED [None]
  - CARDIAC FAILURE [None]
  - CARDIOGENIC SHOCK [None]
  - HEPATIC FAILURE [None]
  - INTERNATIONAL NORMALISED RATIO INCREASED [None]
  - ISCHAEMIC HEPATITIS [None]
  - MENTAL STATUS CHANGES [None]
  - MULTI-ORGAN FAILURE [None]
  - OFF LABEL USE [None]
  - RENAL FAILURE ACUTE [None]
